FAERS Safety Report 12620897 (Version 1)
Quarter: 2016Q3

REPORT INFORMATION
  Report Type: Spontaneous
  Country: US (occurrence: None)
  Receive Date: 20160803
  Receipt Date: 20160803
  Transmission Date: 20161109
  Serious: Yes (Other)
  Sender: FDA-Public Use
  Company Number: None

PATIENT
  Age: 66 Year
  Sex: Female
  Weight: 86.18 kg

DRUGS (1)
  1. RECLAST [Suspect]
     Active Substance: ZOLEDRONIC ACID
     Indication: OSTEOPOROSIS
     Dosage: ONCE A YEAR INTO A VEIN
     Route: 042
     Dates: start: 20160725

REACTIONS (7)
  - Bone pain [None]
  - Pain in extremity [None]
  - Myalgia [None]
  - Musculoskeletal pain [None]
  - Influenza like illness [None]
  - Mobility decreased [None]
  - Joint dislocation [None]

NARRATIVE: CASE EVENT DATE: 20160725
